FAERS Safety Report 25871789 (Version 1)
Quarter: 2025Q4

REPORT INFORMATION
  Report Type: Report from Study
  Country: US (occurrence: US)
  Receive Date: 20251001
  Receipt Date: 20251001
  Transmission Date: 20260118
  Serious: Yes (Hospitalization, Other)
  Sender: GILEAD
  Company Number: US-GILEAD-2025-0730429

PATIENT
  Age: 31 Year
  Sex: Female

DRUGS (2)
  1. AMBRISENTAN [Suspect]
     Active Substance: AMBRISENTAN
     Indication: Pulmonary arterial hypertension
     Dosage: 100 MG, QD
     Route: 048
     Dates: start: 202403
  2. TREPROSTINIL [Suspect]
     Active Substance: TREPROSTINIL
     Indication: Pulmonary arterial hypertension
     Dosage: 47NG/KG/MIN INTRAVENOUSLY CONTINUOUSLY
     Route: 042
     Dates: start: 202208

REACTIONS (2)
  - Kidney infection [Unknown]
  - Cystitis [Unknown]
